FAERS Safety Report 20147750 (Version 2)
Quarter: 2022Q1

REPORT INFORMATION
  Report Type: Spontaneous
  Country: JP (occurrence: JP)
  Receive Date: 20211203
  Receipt Date: 20220212
  Transmission Date: 20220423
  Serious: Yes (Hospitalization)
  Sender: FDA-Public Use
  Company Number: JP-CHUGAI-2021029645

PATIENT
  Age: 70 Year
  Sex: Male
  Weight: 50.4 kg

DRUGS (2)
  1. TECENTRIQ [Suspect]
     Active Substance: ATEZOLIZUMAB
     Indication: Hepatocellular carcinoma
     Route: 041
     Dates: start: 20210630, end: 20211013
  2. AVASTIN [Suspect]
     Active Substance: BEVACIZUMAB
     Indication: Hepatocellular carcinoma
     Route: 041
     Dates: start: 20210630, end: 20211013

REACTIONS (1)
  - Cardiac failure [Not Recovered/Not Resolved]

NARRATIVE: CASE EVENT DATE: 20211102
